FAERS Safety Report 14753720 (Version 1)
Quarter: 2018Q2

REPORT INFORMATION
  Report Type: Spontaneous
  Country: US (occurrence: US)
  Receive Date: 20180406
  Receipt Date: 20180406
  Transmission Date: 20180711
  Serious: No
  Sender: FDA-Public Use
  Company Number: None

PATIENT
  Age: 61 Year
  Sex: Male
  Weight: 127.35 kg

DRUGS (10)
  1. OCREVUS [Suspect]
     Active Substance: OCRELIZUMAB
     Indication: MULTIPLE SCLEROSIS
     Route: 042
  2. LYSINE 500 MG [Concomitant]
  3. PAROXETINE 40 MG DAILY [Concomitant]
  4. VITAMIN D 4000 UNITS DAILY [Concomitant]
  5. PRILOSEC 20 MG DAILY [Concomitant]
  6. FLOMAX 0.4 MG [Concomitant]
  7. FISH OIL CAPSULE 6000 MG DAILY [Concomitant]
  8. VITAMIN C 2000 MG DAILY [Concomitant]
  9. OSTEO BI-FLEX JOINT SHIELD 2 TABLETS DAILY [Concomitant]
  10. PRAVASTATIN 40 MG DAILY [Concomitant]

REACTIONS (5)
  - Seasonal allergy [None]
  - Cough [None]
  - Throat irritation [None]
  - Sneezing [None]
  - Upper respiratory tract infection [None]

NARRATIVE: CASE EVENT DATE: 20180330
